FAERS Safety Report 24277879 (Version 1)
Quarter: 2024Q3

REPORT INFORMATION
  Report Type: Spontaneous
  Country: US (occurrence: US)
  Receive Date: 20240903
  Receipt Date: 20240903
  Transmission Date: 20241016
  Serious: Yes (Other)
  Sender: ORGANON
  Company Number: US-ORGANON-O2409USA000058

PATIENT
  Sex: Female
  Weight: 50.249 kg

DRUGS (1)
  1. NEXPLANON [Suspect]
     Active Substance: ETONOGESTREL
     Indication: Contraception
     Dosage: 1 IMPLANT (68 MG) (LEFT ARM)
     Route: 059
     Dates: start: 20240730

REACTIONS (3)
  - Device expulsion [Not Recovered/Not Resolved]
  - Medical device site discomfort [Not Recovered/Not Resolved]
  - No adverse event [Unknown]

NARRATIVE: CASE EVENT DATE: 20240101
